FAERS Safety Report 13505412 (Version 1)
Quarter: 2017Q2

REPORT INFORMATION
  Report Type: Spontaneous
  Country: US (occurrence: US)
  Receive Date: 20170502
  Receipt Date: 20170502
  Transmission Date: 20170830
  Serious: No
  Sender: FDA-Public Use
  Company Number: US-ASTRAZENECA-2016SF14547

PATIENT
  Sex: Female

DRUGS (27)
  1. BYETTA [Suspect]
     Active Substance: EXENATIDE
     Route: 058
  2. CLOTRIMAZOLE. [Concomitant]
     Active Substance: CLOTRIMAZOLE
     Dosage: TWO TIMES DAILY AS NEEDED
     Route: 061
     Dates: start: 20160824
  3. NEURONTIN [Concomitant]
     Active Substance: GABAPENTIN
     Route: 048
  4. HYDRODIURIL [Concomitant]
     Active Substance: HYDROCHLOROTHIAZIDE
     Dosage: 1.0DF AS REQUIRED
     Route: 048
     Dates: start: 20160802
  5. COZAAR [Concomitant]
     Active Substance: LOSARTAN POTASSIUM
     Route: 048
     Dates: start: 20160712
  6. NORVASC [Concomitant]
     Active Substance: AMLODIPINE BESYLATE
  7. ALLOPURINOL. [Concomitant]
     Active Substance: ALLOPURINOL
     Route: 048
     Dates: start: 20160802
  8. ERGOCALCIFEROL. [Concomitant]
     Active Substance: ERGOCALCIFEROL
     Dosage: BY MOUTH
     Route: 048
  9. DITROPAN [Concomitant]
     Active Substance: OXYBUTYNIN CHLORIDE
     Dosage: 1-2 TABLETS TWO TIMES DAILY AS NEEDED
     Route: 048
     Dates: start: 20160802
  10. MAXIVATE [Concomitant]
     Dosage: TWO TIMES DAILY AS NEEDED
     Route: 061
     Dates: start: 20160225
  11. SYNTHROID [Concomitant]
     Active Substance: LEVOTHYROXINE SODIUM
     Route: 048
     Dates: start: 20160802
  12. DOLOPHINE [Concomitant]
     Active Substance: METHADONE HYDROCHLORIDE
     Indication: PAIN
     Route: 048
  13. MIRAPEX [Concomitant]
     Active Substance: PRAMIPEXOLE DIHYDROCHLORIDE
     Dates: start: 20160802
  14. ZOCOR [Concomitant]
     Active Substance: SIMVASTATIN
     Dates: start: 20150824
  15. KENALOG [Concomitant]
     Active Substance: TRIAMCINOLONE ACETONIDE
     Dosage: APPLY TWICE A DAY TO AFFECTED AREA OF SCALP WHEN FLARING UP
     Route: 061
     Dates: start: 20131115
  16. NORCO [Concomitant]
     Active Substance: ACETAMINOPHEN\HYDROCODONE BITARTRATE
     Route: 048
  17. NORVASC [Concomitant]
     Active Substance: AMLODIPINE BESYLATE
     Route: 048
     Dates: start: 20150902
  18. PROZAC [Concomitant]
     Active Substance: FLUOXETINE HYDROCHLORIDE
     Route: 048
     Dates: start: 20160802
  19. ASPIRIN. [Concomitant]
     Active Substance: ASPIRIN
     Dates: start: 20130829
  20. LIORESAL [Concomitant]
     Active Substance: BACLOFEN
  21. WELLBUTRIN XL [Concomitant]
     Active Substance: BUPROPION HYDROCHLORIDE
     Route: 048
     Dates: start: 20160208
  22. NOVOLOG [Concomitant]
     Active Substance: INSULIN ASPART
     Dosage: 0.3 ML INTO THE SKIN THREE TIMES DAILY BEFORE MEALS
     Route: 058
     Dates: start: 20141021, end: 20151021
  23. NEURONTIN [Concomitant]
     Active Substance: GABAPENTIN
  24. METFORMIN [Concomitant]
     Active Substance: METFORMIN HYDROCHLORIDE
     Route: 048
     Dates: start: 20160802
  25. NAPROXEN SODIUM. [Suspect]
     Active Substance: NAPROXEN SODIUM
     Route: 065
  26. LYRICA [Concomitant]
     Active Substance: PREGABALIN
     Route: 048
  27. INSULIN [Concomitant]
     Active Substance: INSULIN NOS
     Dosage: TWO TIMES DAILY
     Dates: start: 20150423

REACTIONS (1)
  - Drug hypersensitivity [Unknown]
